FAERS Safety Report 17821650 (Version 3)
Quarter: 2020Q4

REPORT INFORMATION
  Report Type: Spontaneous
  Country: CA (occurrence: CA)
  Receive Date: 20200525
  Receipt Date: 20201020
  Transmission Date: 20210113
  Serious: Yes (Hospitalization)
  Sender: FDA-Public Use
  Company Number: CA-TEVA-2020-CA-1239322

PATIENT
  Age: 58 Year
  Sex: Female

DRUGS (5)
  1. QUETIAPINE. [Suspect]
     Active Substance: QUETIAPINE
     Dosage: 200 MILLIGRAM DAILY;
     Route: 065
  2. QUETIAPINE. [Interacting]
     Active Substance: QUETIAPINE
     Dosage: AT BEDTIME
     Route: 065
  3. LITHIUM. [Interacting]
     Active Substance: LITHIUM
     Dosage: 900 MILLIGRAM DAILY;
     Route: 065
  4. CLONAZEPAM. [Interacting]
     Active Substance: CLONAZEPAM
     Dosage: AS NEEDED
     Route: 065
  5. GABAPENTIN. [Concomitant]
     Active Substance: GABAPENTIN
     Route: 065

REACTIONS (6)
  - Renal impairment [Recovering/Resolving]
  - Toxicity to various agents [Not Recovered/Not Resolved]
  - Diarrhoea [Unknown]
  - Toxicity to various agents [Recovering/Resolving]
  - Drug interaction [Unknown]
  - Vomiting [Unknown]
